FAERS Safety Report 14223023 (Version 1)
Quarter: 2017Q4

REPORT INFORMATION
  Report Type: Spontaneous
  Country: US (occurrence: US)
  Receive Date: 20171125
  Receipt Date: 20171125
  Transmission Date: 20180321
  Serious: Yes (Other)
  Sender: FDA-Public Use
  Company Number: US-ROCHE-2025886

PATIENT
  Age: 36 Year
  Sex: Female
  Weight: 97 kg

DRUGS (1)
  1. ACTEMRA [Suspect]
     Active Substance: TOCILIZUMAB
     Indication: RHEUMATOID ARTHRITIS
     Route: 058
     Dates: start: 201401, end: 201707

REACTIONS (1)
  - Urticarial vasculitis [Recovered/Resolved]

NARRATIVE: CASE EVENT DATE: 201704
